FAERS Safety Report 8010897 (Version 4)
Quarter: 2012Q4

REPORT INFORMATION
  Report Type: 
  Country: US (occurrence: US)
  Receive Date: 20110627
  Receipt Date: 20121220
  Transmission Date: 20130627
  Serious: Yes (Hospitalization)
  Sender: FDA-Public Use
  Company Number: US-BAYER-2011-052549

PATIENT
  Age: 41 Year
  Sex: Female
  Weight: 85.71 kg

DRUGS (6)
  1. YAZ [Suspect]
     Dosage: UNK
     Route: 048
     Dates: start: 200910, end: 201003
  2. ALBUTEROL [Concomitant]
  3. FERROUS SULFATE [Concomitant]
  4. MEDROXYPROGESTERONE [Concomitant]
  5. VITAMIN C [Concomitant]
  6. MOTRIN [Concomitant]
     Dosage: 800 mg, UNK
     Route: 048

REACTIONS (6)
  - Pulmonary embolism [None]
  - Pneumothorax [None]
  - Deep vein thrombosis [Recovered/Resolved]
  - Injury [None]
  - Anxiety [None]
  - Pain [None]
